FAERS Safety Report 25778613 (Version 1)
Quarter: 2025Q3

REPORT INFORMATION
  Report Type: Spontaneous
  Country: US (occurrence: None)
  Receive Date: 20250908
  Receipt Date: 20250908
  Transmission Date: 20251021
  Serious: Yes (Other)
  Sender: FDA-CTU
  Company Number: None

PATIENT
  Age: 11 Year
  Sex: Female
  Weight: 46 kg

DRUGS (2)
  1. CUVITRU [Suspect]
     Active Substance: HUMAN IMMUNOGLOBULIN G
     Indication: Primary immunodeficiency syndrome
     Dosage: OTHER FREQUENCY : ONCE WEEKLY;?
     Route: 058
     Dates: start: 20241230
  2. CUVITRU [Suspect]
     Active Substance: HUMAN IMMUNOGLOBULIN G
     Indication: Primary immunodeficiency syndrome
     Dosage: OTHER FREQUENCY : ONCE WEEKLY;?
     Route: 058
     Dates: start: 20241230

REACTIONS (4)
  - Infusion related reaction [None]
  - Urticaria [None]
  - Infusion site rash [None]
  - Hypoaesthesia oral [None]

NARRATIVE: CASE EVENT DATE: 20250907
